FAERS Safety Report 8528602-1 (Version None)
Quarter: 2012Q3

REPORT INFORMATION
  Report Type: 
  Country: None (occurrence: None)
  Receive Date: 20120723
  Receipt Date: 20120712
  Transmission Date: 20120928
  Serious: Yes (Hospitalization)
  Sender: FDA-Public Use
  Company Number: US-BIOGENIDEC-2012BI025682

PATIENT
  Sex: Female

DRUGS (1)
  1. AVONEX [Suspect]
     Indication: MULTIPLE SCLEROSIS
     Route: 030
     Dates: start: 20110101

REACTIONS (6)
  - MIGRAINE [None]
  - INJURY ASSOCIATED WITH DEVICE [None]
  - VOMITING [None]
  - SURGERY [None]
  - MUSCLE ATROPHY [None]
  - INJECTION SITE HAEMORRHAGE [None]
